FAERS Safety Report 17898157 (Version 2)
Quarter: 2020Q4

REPORT INFORMATION
  Report Type: Spontaneous
  Country: US (occurrence: US)
  Receive Date: 20200616
  Receipt Date: 20201020
  Transmission Date: 20210113
  Serious: Yes (Hospitalization)
  Sender: FDA-Public Use
  Company Number: US-BEH-2020118416

PATIENT
  Age: 14 Year
  Sex: Male

DRUGS (1)
  1. HIZENTRA [Suspect]
     Active Substance: HUMAN IMMUNOGLOBULIN G
     Indication: HYPOGAMMAGLOBULINAEMIA
     Dosage: 7 GRAM, QW
     Route: 058
     Dates: start: 20200210

REACTIONS (7)
  - Skin exfoliation [Recovered/Resolved]
  - Rash [Unknown]
  - Skin disorder [Unknown]
  - Eyelid margin crusting [Recovered/Resolved]
  - Infusion site pain [Unknown]
  - Illness [Recovered/Resolved]
  - Acarodermatitis [Recovered/Resolved]

NARRATIVE: CASE EVENT DATE: 20200528
